FAERS Safety Report 5005254-9 (Version None)
Quarter: 2006Q2

REPORT INFORMATION
  Report Type: 
  Country: None (occurrence: None)
  Receive Date: 20060518
  Receipt Date: 20050105
  Transmission Date: 20061013
  Serious: Yes (Death)
  Sender: FDA-Public Use
  Company Number: US-GLAXOSMITHKLINE-A0548436A

PATIENT
  Age: 20 Year
  Sex: Male

DRUGS (3)
  1. SEREVENT [Suspect]
     Indication: ASTHMA
     Route: 055
  2. ADVAIR DISKUS 100/50 [Suspect]
     Indication: ASTHMA
     Route: 055
     Dates: start: 20021216
  3. PROVENTIL [Concomitant]
     Indication: ASTHMA
     Route: 055
     Dates: start: 20021216

REACTIONS (3)
  - ASTHMA [None]
  - CARDIAC ARREST [None]
  - RESPIRATORY ARREST [None]
